FAERS Safety Report 7324374-7 (Version None)
Quarter: 2011Q1

REPORT INFORMATION
  Report Type: 
  Country: None (occurrence: None)
  Receive Date: 20110301
  Receipt Date: 20110223
  Transmission Date: 20110831
  Serious: Yes (Hospitalization, Other)
  Sender: FDA-Public Use
  Company Number: US-PFIZER INC-2010063541

PATIENT
  Sex: Male
  Weight: 20 kg

DRUGS (5)
  1. TRILEPTAL [Concomitant]
     Indication: CONVULSION
     Dosage: 300 MG, 2X/DAY
     Dates: start: 20070914, end: 20071008
  2. LAMICTAL [Concomitant]
     Indication: CONVULSION
     Dosage: 5 MG, 2X/DAY
     Route: 048
     Dates: start: 20070914, end: 20071008
  3. DILANTIN [Suspect]
     Indication: CONVULSION
     Dosage: 50 MG, 2 AND HALF TIMES DAILY
     Route: 048
     Dates: start: 20070911, end: 20071008
  4. CLONIDINE [Concomitant]
     Dosage: 0.2 MG, 2X/DAY
     Route: 048
  5. AMBIEN [Concomitant]
     Dosage: 5 MG, 1X/DAY

REACTIONS (1)
  - STEVENS-JOHNSON SYNDROME [None]
